FAERS Safety Report 5964112-3 (Version None)
Quarter: 2008Q4

REPORT INFORMATION
  Report Type: 
  Country: None (occurrence: None)
  Receive Date: 20081124
  Receipt Date: 20081118
  Transmission Date: 20090506
  Serious: Yes (Hospitalization)
  Sender: FDA-Public Use
  Company Number: GB-ROXANE LABORATORIES, INC.-2008-RO-00240RO

PATIENT
  Age: 7 Year
  Sex: Female

DRUGS (14)
  1. MYCOPHENOLATE MOFETIL [Suspect]
     Indication: EVANS SYNDROME
  2. PREDNISOLONE [Suspect]
     Indication: EVANS SYNDROME
  3. IMMUNE GLOBULIN NOS [Suspect]
     Indication: EVANS SYNDROME
     Route: 042
  4. CYCLOSPORINE [Suspect]
     Indication: EVANS SYNDROME
  5. RITUXIMAB [Suspect]
     Indication: EVANS SYNDROME
  6. PREDNISOLONE [Concomitant]
     Indication: LYMPHOCYTIC INFILTRATION
  7. RITUXIMAB [Concomitant]
     Indication: LYMPHOCYTIC INFILTRATION
  8. EPOPROSTENOL SODIUM [Concomitant]
     Indication: PULMONARY HYPERTENSION
  9. ALEMTUZUMAB [Concomitant]
     Indication: PROPHYLAXIS AGAINST GRAFT VERSUS HOST DISEASE
  10. FLUDARABINE PHOSPHATE [Concomitant]
     Indication: PROPHYLAXIS AGAINST GRAFT VERSUS HOST DISEASE
  11. MELPHALAN [Concomitant]
     Indication: PROPHYLAXIS AGAINST GRAFT VERSUS HOST DISEASE
  12. CYCLOSPORINE [Concomitant]
     Indication: PROPHYLAXIS AGAINST GRAFT VERSUS HOST DISEASE
  13. MYCOPHENOLATE MOFETIL [Concomitant]
     Indication: PROPHYLAXIS AGAINST GRAFT VERSUS HOST DISEASE
  14. SILDENAFIL CITRATE [Concomitant]
     Indication: VASODILATION PROCEDURE
     Route: 048

REACTIONS (5)
  - ANOREXIA [None]
  - HAEMORRHAGE [None]
  - LYMPHOCYTIC INFILTRATION [None]
  - PULMONARY HYPERTENSION [None]
  - SPLENECTOMY [None]
